FAERS Safety Report 4353052-1 (Version None)
Quarter: 2004Q2

REPORT INFORMATION
  Report Type: 
  Country: None (occurrence: None)
  Receive Date: 20040429
  Receipt Date: 20040419
  Transmission Date: 20050107
  Serious: Yes (Hospitalization, Other)
  Sender: FDA-Public Use
  Company Number: JP-JNJFOC-20040404502

PATIENT
  Age: 23 Year
  Sex: Male
  Weight: 40 kg

DRUGS (30)
  1. REMICADE [Suspect]
     Indication: ANAL FISTULA
     Dosage: SEE IMAGE
     Route: 041
     Dates: start: 20020902, end: 20020902
  2. REMICADE [Suspect]
     Indication: CROHN'S DISEASE
     Dosage: SEE IMAGE
     Route: 041
     Dates: start: 20020902, end: 20020902
  3. REMICADE [Suspect]
     Indication: ANAL FISTULA
     Dosage: SEE IMAGE
     Route: 041
     Dates: start: 20021029, end: 20021029
  4. REMICADE [Suspect]
     Indication: CROHN'S DISEASE
     Dosage: SEE IMAGE
     Route: 041
     Dates: start: 20021029, end: 20021029
  5. REMICADE [Suspect]
     Indication: ANAL FISTULA
     Dosage: SEE IMAGE
     Route: 041
     Dates: start: 20021112, end: 20021112
  6. REMICADE [Suspect]
     Indication: CROHN'S DISEASE
     Dosage: SEE IMAGE
     Route: 041
     Dates: start: 20021112, end: 20021112
  7. REMICADE [Suspect]
     Indication: ANAL FISTULA
     Dosage: SEE IMAGE
     Route: 041
     Dates: start: 20021210, end: 20021210
  8. REMICADE [Suspect]
     Indication: CROHN'S DISEASE
     Dosage: SEE IMAGE
     Route: 041
     Dates: start: 20021210, end: 20021210
  9. REMICADE [Suspect]
     Indication: ANAL FISTULA
     Dosage: SEE IMAGE
     Route: 041
     Dates: start: 20030101, end: 20030101
  10. REMICADE [Suspect]
     Indication: CROHN'S DISEASE
     Dosage: SEE IMAGE
     Route: 041
     Dates: start: 20030101, end: 20030101
  11. REMICADE [Suspect]
     Indication: ANAL FISTULA
     Dosage: SEE IMAGE
     Route: 041
     Dates: start: 20030225, end: 20030225
  12. REMICADE [Suspect]
     Indication: CROHN'S DISEASE
     Dosage: SEE IMAGE
     Route: 041
     Dates: start: 20030225, end: 20030225
  13. REMICADE [Suspect]
     Indication: ANAL FISTULA
     Dosage: SEE IMAGE
     Route: 041
     Dates: start: 20030311, end: 20030311
  14. REMICADE [Suspect]
     Indication: CROHN'S DISEASE
     Dosage: SEE IMAGE
     Route: 041
     Dates: start: 20030311, end: 20030311
  15. REMICADE [Suspect]
     Indication: ANAL FISTULA
     Dosage: SEE IMAGE
     Route: 041
     Dates: start: 20030409, end: 20030409
  16. REMICADE [Suspect]
     Indication: CROHN'S DISEASE
     Dosage: SEE IMAGE
     Route: 041
     Dates: start: 20030409, end: 20030409
  17. REMICADE [Suspect]
     Indication: ANAL FISTULA
     Dosage: SEE IMAGE
     Route: 041
     Dates: start: 20030624, end: 20030624
  18. REMICADE [Suspect]
     Indication: CROHN'S DISEASE
     Dosage: SEE IMAGE
     Route: 041
     Dates: start: 20030624, end: 20030624
  19. REMICADE [Suspect]
     Indication: ANAL FISTULA
     Dosage: SEE IMAGE
     Route: 041
     Dates: start: 20030708, end: 20030708
  20. REMICADE [Suspect]
     Indication: CROHN'S DISEASE
     Dosage: SEE IMAGE
     Route: 041
     Dates: start: 20030708, end: 20030708
  21. REMICADE [Suspect]
     Indication: ANAL FISTULA
     Dosage: SEE IMAGE
     Route: 041
     Dates: start: 20030805, end: 20030805
  22. REMICADE [Suspect]
     Indication: CROHN'S DISEASE
     Dosage: SEE IMAGE
     Route: 041
     Dates: start: 20030805, end: 20030805
  23. REMICADE [Suspect]
     Indication: ANAL FISTULA
     Dosage: SEE IMAGE
     Route: 041
     Dates: start: 20031202, end: 20031202
  24. REMICADE [Suspect]
     Indication: CROHN'S DISEASE
     Dosage: SEE IMAGE
     Route: 041
     Dates: start: 20031202, end: 20031202
  25. REMICADE [Suspect]
     Indication: ANAL FISTULA
     Dosage: SEE IMAGE
     Route: 041
     Dates: start: 20040127, end: 20040127
  26. REMICADE [Suspect]
     Indication: CROHN'S DISEASE
     Dosage: SEE IMAGE
     Route: 041
     Dates: start: 20040127, end: 20040127
  27. PENTASA (MESALAZINE)UNKNOWN [Concomitant]
  28. GATIFLO (GATIFLOXACIN)UNKNOWN [Concomitant]
  29. TOTAL PARENTERAL NUTRITION (POLYVINYL ALCOHOL) [Concomitant]
  30. MEROPEN (MEROPENEM)UNKNOWN [Concomitant]

REACTIONS (6)
  - CANDIDA SEPSIS [None]
  - DRUG INEFFECTIVE [None]
  - PELVIC ABSCESS [None]
  - PRURITUS [None]
  - PYREXIA [None]
  - RASH [None]
